FAERS Safety Report 8113578-1 (Version None)
Quarter: 2012Q1

REPORT INFORMATION
  Report Type: 
  Country: None (occurrence: None)
  Receive Date: 20120203
  Receipt Date: 20120201
  Transmission Date: 20120608
  Serious: Yes (Other)
  Sender: FDA-Public Use
  Company Number: JP-PFIZER INC-2012026916

PATIENT
  Age: 35 Year
  Sex: Female

DRUGS (3)
  1. VOGLIBOSE [Suspect]
     Dosage: 26.1 MG, UNK
     Route: 048
  2. AMLODIPINE BESYLATE [Suspect]
     Dosage: 420 MG
     Route: 048
  3. ZOLPIDEM [Suspect]
     Dosage: 500 MG, UNK

REACTIONS (2)
  - RENAL FAILURE ACUTE [None]
  - OVERDOSE [None]
